FAERS Safety Report 7754693-1 (Version None)
Quarter: 2011Q3

REPORT INFORMATION
  Report Type: 
  Country: None (occurrence: None)
  Receive Date: 20110915
  Receipt Date: 20110907
  Transmission Date: 20111222
  Serious: Yes (Other)
  Sender: FDA-Public Use
  Company Number: US-AMGEN-USASP2011045511

PATIENT
  Age: 80 Year
  Sex: Male
  Weight: 77.098 kg

DRUGS (3)
  1. AMLODIPINE [Concomitant]
     Indication: HYPERTENSION
     Dosage: UNK
  2. AVANDIA [Concomitant]
     Indication: DIABETES MELLITUS
     Dosage: UNK
  3. PROCRIT [Suspect]
     Indication: MYELODYSPLASTIC SYNDROME
     Dosage: UNK UNK, Q2WK
     Route: 058
     Dates: start: 20060101

REACTIONS (7)
  - PROSTATE CANCER [None]
  - ASTHMA [None]
  - RENAL FAILURE [None]
  - DYSPNOEA [None]
  - HAEMOGLOBIN DECREASED [None]
  - HEART RATE IRREGULAR [None]
  - PROSTATIC SPECIFIC ANTIGEN INCREASED [None]
